FAERS Safety Report 15272451 (Version 7)
Quarter: 2019Q3

REPORT INFORMATION
  Report Type: Spontaneous
  Country: US (occurrence: US)
  Receive Date: 20180813
  Receipt Date: 20190830
  Transmission Date: 20191004
  Serious: Yes (Hospitalization, Other)
  Sender: FDA-Public Use
  Company Number: US-SA-2018SA133729

PATIENT
  Age: 73 Year
  Sex: Female

DRUGS (3)
  1. AUBAGIO [Suspect]
     Active Substance: TERIFLUNOMIDE
     Dosage: 14 MG, QD
     Route: 048
     Dates: start: 20180323
  2. BACLOFEN. [Suspect]
     Active Substance: BACLOFEN
  3. AUBAGIO [Suspect]
     Active Substance: TERIFLUNOMIDE
     Indication: MULTIPLE SCLEROSIS
     Dosage: 14 MG,QD
     Route: 048
     Dates: start: 2016

REACTIONS (10)
  - Hospitalisation [Unknown]
  - Unevaluable event [Unknown]
  - Muscular weakness [Not Recovered/Not Resolved]
  - Seizure [Unknown]
  - Condition aggravated [Not Recovered/Not Resolved]
  - Fall [Unknown]
  - Neuropathy peripheral [Unknown]
  - Balance disorder [Not Recovered/Not Resolved]
  - Paraesthesia [Unknown]
  - Fatigue [Not Recovered/Not Resolved]

NARRATIVE: CASE EVENT DATE: 20190809
